FAERS Safety Report 8933810 (Version 3)
Quarter: 2013Q1

REPORT INFORMATION
  Report Type: Report from Study
  Country: BE (occurrence: BE)
  Receive Date: 20121129
  Receipt Date: 20130129
  Transmission Date: 20140127
  Serious: Yes (Other)
  Sender: FDA-Public Use
  Company Number: BE-ABBOTT-12P-013-1012256-00

PATIENT
  Age: 62 Year
  Sex: Female

DRUGS (7)
  1. ELTHYRONE [Suspect]
     Indication: PRODUCT USED FOR UNKNOWN INDICATION
  2. DUODOPA [Suspect]
     Indication: PARKINSON^S DISEASE
     Dosage: AM DOSE=0.5ML, CONTIN=0.8ML DURING 16HRS, EXTRA DOSE=0.3ML
     Route: 050
     Dates: start: 20121119, end: 20121120
  3. DUODOPA [Suspect]
     Dosage: AM DOSE=0.5ML, CONTIN=1ML/H DURING 16HRS, EXTRA DOSE=0.5ML
     Route: 050
     Dates: start: 20121120, end: 20121121
  4. DUODOPA [Suspect]
     Dosage: RE-STARTED
     Dates: start: 20121123
  5. EMCONCOR [Concomitant]
     Indication: PRODUCT USED FOR UNKNOWN INDICATION
  6. LIORESAL [Concomitant]
     Indication: PRODUCT USED FOR UNKNOWN INDICATION
  7. SIPRALEXA [Concomitant]
     Indication: PRODUCT USED FOR UNKNOWN INDICATION

REACTIONS (5)
  - Gastrointestinal perforation [Unknown]
  - Abdominal pain [Recovering/Resolving]
  - Vomiting [Recovered/Resolved]
  - Depression [Unknown]
  - Apathy [Unknown]
